FAERS Safety Report 9470177 (Version 2)
Quarter: 2013Q4

REPORT INFORMATION
  Report Type: Spontaneous
  Country: US (occurrence: US)
  Receive Date: 20130822
  Receipt Date: 20131120
  Transmission Date: 20140711
  Serious: Yes (Other)
  Sender: FDA-Public Use
  Company Number: US-COVIDIEN/TYCO HEALTHCARE/MALLINCKRODT-T201303970

PATIENT
  Age: 59 Year
  Sex: Female

DRUGS (2)
  1. GABLOFEN [Suspect]
     Indication: MUSCLE SPASTICITY
     Dosage: 226.1 MCG/DAY
     Route: 037
     Dates: start: 20130726
  2. GABLOFEN [Suspect]
     Dosage: 1000 MCG/ML, UNK
     Dates: end: 20130726

REACTIONS (1)
  - Drug withdrawal syndrome [Unknown]
